FAERS Safety Report 13337857 (Version 1)
Quarter: 2017Q1

REPORT INFORMATION
  Report Type: Spontaneous
  Country: US (occurrence: US)
  Receive Date: 20170315
  Receipt Date: 20170315
  Transmission Date: 20170428
  Serious: No
  Sender: FDA-Public Use
  Company Number: None

PATIENT
  Age: 66 Year
  Sex: Female

DRUGS (14)
  1. ALBUTEROL. [Concomitant]
     Active Substance: ALBUTEROL
  2. NEXIUM [Concomitant]
     Active Substance: ESOMEPRAZOLE MAGNESIUM
  3. ATORVASTATIN [Concomitant]
     Active Substance: ATORVASTATIN
  4. LYRICA [Concomitant]
     Active Substance: PREGABALIN
  5. CALCIUM [Concomitant]
     Active Substance: CALCIUM
  6. SALINE [Concomitant]
     Active Substance: SODIUM CHLORIDE
  7. NEBUSAL 7% NACL [Concomitant]
     Active Substance: SODIUM CHLORIDE
  8. ADVAIR HFA [Concomitant]
     Active Substance: FLUTICASONE PROPIONATE\SALMETEROL XINAFOATE
  9. ASPIRIN. [Concomitant]
     Active Substance: ASPIRIN
  10. OXYCODONE [Concomitant]
     Active Substance: OXYCODONE
  11. SILDENAFIL 20MG [Suspect]
     Active Substance: SILDENAFIL
     Indication: PULMONARY ARTERIAL HYPERTENSION
     Route: 048
     Dates: start: 20170309
  12. LORATADINE. [Concomitant]
     Active Substance: LORATADINE
  13. IPRATROPIUM [Concomitant]
     Active Substance: IPRATROPIUM
  14. MONTELUKAST [Concomitant]
     Active Substance: MONTELUKAST SODIUM

REACTIONS (1)
  - Drug hypersensitivity [None]

NARRATIVE: CASE EVENT DATE: 20170313
